FAERS Safety Report 7543827-X (Version None)
Quarter: 2011Q2

REPORT INFORMATION
  Report Type: 
  Country: None (occurrence: None)
  Receive Date: 20110613
  Receipt Date: 20110427
  Transmission Date: 20111010
  Serious: No
  Sender: FDA-Public Use
  Company Number: ES-UCBSA-031193

PATIENT

DRUGS (1)
  1. KEPPRA [Suspect]

REACTIONS (1)
  - HYPONATRAEMIA [None]
